FAERS Safety Report 14257914 (Version 1)
Quarter: 2017Q4

REPORT INFORMATION
  Report Type: Report from Study
  Country: None (occurrence: BR)
  Receive Date: 20171207
  Receipt Date: 20171207
  Transmission Date: 20180321
  Serious: Yes (Death, Hospitalization, Disabling, Other)
  Sender: FDA-Public Use
  Company Number: BR-ABBVIE-17K-020-2185526-00

PATIENT
  Age: 61 Year
  Sex: Female
  Weight: 75 kg

DRUGS (4)
  1. HUMIRA [Suspect]
     Active Substance: ADALIMUMAB
     Indication: CROHN^S DISEASE
     Dosage: WEEK 0
     Route: 058
     Dates: start: 20170302, end: 20170302
  2. ADRENALINE [Suspect]
     Active Substance: EPINEPHRINE
     Indication: PRODUCT USED FOR UNKNOWN INDICATION
     Route: 065
  3. HUMIRA [Suspect]
     Active Substance: ADALIMUMAB
     Dosage: WEEK 2
     Route: 058
     Dates: start: 20170316, end: 20170316
  4. HUMIRA [Suspect]
     Active Substance: ADALIMUMAB
     Route: 058
     Dates: start: 2017

REACTIONS (15)
  - Hepatic rupture [Not Recovered/Not Resolved]
  - Epistaxis [Not Recovered/Not Resolved]
  - Brain death [Fatal]
  - Gait inability [Unknown]
  - Medical induction of coma [Not Recovered/Not Resolved]
  - Coma [Not Recovered/Not Resolved]
  - Speech disorder [Unknown]
  - Ear haemorrhage [Not Recovered/Not Resolved]
  - Respiratory failure [Not Recovered/Not Resolved]
  - Asthenia [Unknown]
  - Mouth haemorrhage [Not Recovered/Not Resolved]
  - Syncope [Unknown]
  - Cerebrovascular accident [Not Recovered/Not Resolved]
  - Hallucination [Unknown]
  - Renal failure [Not Recovered/Not Resolved]

NARRATIVE: CASE EVENT DATE: 2017
